FAERS Safety Report 7904773-2 (Version None)
Quarter: 2011Q4

REPORT INFORMATION
  Report Type: 
  Country: None (occurrence: None)
  Receive Date: 20111109
  Receipt Date: 20111031
  Transmission Date: 20120403
  Serious: Yes (Hospitalization)
  Sender: FDA-Public Use
  Company Number: US-BAYER-201031828NA

PATIENT
  Age: 40 Year
  Sex: Female

DRUGS (4)
  1. PROPOXYPHENE NAPSYLATE AND ACETAMINOPHEN [Concomitant]
     Indication: ANALGESIC THERAPY
     Dosage: UNK UNK, PRN
     Dates: start: 20080910, end: 20080930
  2. CYCLOBENZAPRINE [Concomitant]
     Indication: MUSCLE SPASMS
     Dosage: 10 MG, QD
     Dates: start: 20080910, end: 20080925
  3. IBUPROFEN [Concomitant]
     Indication: ANALGESIC THERAPY
     Dosage: 800 MG, QD
     Dates: start: 20080910, end: 20080925
  4. YAZ [Suspect]
     Indication: CONTRACEPTION
     Dosage: UNK
     Route: 048
     Dates: start: 20080801, end: 20080901

REACTIONS (3)
  - ANXIETY [None]
  - PULMONARY EMBOLISM [None]
  - DEPRESSION [None]
